FAERS Safety Report 9959826 (Version 1)
Quarter: 2014Q1

REPORT INFORMATION
  Report Type: Spontaneous
  Country: US (occurrence: None)
  Receive Date: 20140228
  Receipt Date: 20140228
  Transmission Date: 20141002
  Serious: No
  Sender: FDA-Public Use
  Company Number: None

PATIENT
  Age: 62 Year
  Sex: Male
  Weight: 109.2 kg

DRUGS (1)
  1. ALFA 2 INTERFERON 2B [Suspect]
     Dosage: 369 MILLION IU

REACTIONS (1)
  - Erectile dysfunction [None]
